FAERS Safety Report 14698148 (Version 1)
Quarter: 2018Q1

REPORT INFORMATION
  Report Type: Spontaneous
  Country: US (occurrence: US)
  Receive Date: 20180330
  Receipt Date: 20180330
  Transmission Date: 20180509
  Serious: Yes (Other)
  Sender: FDA-Public Use
  Company Number: US-B.I. PHARMACEUTICALS,INC./RIDGEFIELD-2018-BI-017750

PATIENT
  Age: 60 Year

DRUGS (1)
  1. SYNJARDY [Suspect]
     Active Substance: EMPAGLIFLOZIN\METFORMIN HYDROCHLORIDE
     Indication: DIABETES MELLITUS
     Dosage: STRENGTH:12.5MG/1000MG;FORMULATION:TABLET ADMINISTRATION CORRECT?YESACTIONTAKEN: NOT REPORTED
     Route: 048

REACTIONS (1)
  - Amputation [Unknown]
